FAERS Safety Report 9039709 (Version 1)
Quarter: 2013Q1

REPORT INFORMATION
  Report Type: Report from Study
  Country: US (occurrence: US)
  Receive Date: 20130130
  Receipt Date: 20130130
  Transmission Date: 20140127
  Serious: No
  Sender: FDA-Public Use
  Company Number: US-ABBOTT-12P-163-0908647-00

PATIENT
  Age: 61 Year
  Sex: Female

DRUGS (3)
  1. HUMIRA 40 MG/0.8 ML PEN [Suspect]
     Indication: RHEUMATOID ARTHRITIS
     Dates: start: 20080101, end: 201111
  2. AMBIEN CR [Concomitant]
     Indication: INSOMNIA
  3. VITAMIN D2 [Concomitant]
     Indication: PRODUCT USED FOR UNKNOWN INDICATION

REACTIONS (15)
  - Infectious mononucleosis [Recovering/Resolving]
  - Epstein-Barr virus infection [Recovering/Resolving]
  - Injection site swelling [None]
  - Injection site induration [Recovering/Resolving]
  - Injection site erythema [Recovering/Resolving]
  - Malaise [Recovered/Resolved]
  - Skin fissures [Recovering/Resolving]
  - Lower respiratory tract infection [Recovering/Resolving]
  - Asthenia [Recovering/Resolving]
  - Productive cough [Recovering/Resolving]
  - Injection site infection [Recovering/Resolving]
  - Hypersensitivity [Recovering/Resolving]
  - Asthma [Unknown]
  - Impaired healing [Recovering/Resolving]
  - Nonspecific reaction [Unknown]
